FAERS Safety Report 5844010-6 (Version None)
Quarter: 2008Q3

REPORT INFORMATION
  Report Type: 
  Country: None (occurrence: None)
  Receive Date: 20080813
  Receipt Date: 20080806
  Transmission Date: 20090109
  Serious: Yes (Hospitalization)
  Sender: FDA-Public Use
  Company Number: US-AVENTIS-200815035US

PATIENT
  Sex: Male

DRUGS (1)
  1. LOVENOX [Suspect]
     Indication: THROMBOSIS
     Dosage: DOSE: UNK
     Dates: start: 20070301

REACTIONS (2)
  - INCORRECT ROUTE OF DRUG ADMINISTRATION [None]
  - INJECTION SITE PAIN [None]
